FAERS Safety Report 9030212 (Version 2)
Quarter: 2013Q1

REPORT INFORMATION
  Report Type: Spontaneous
  Country: US (occurrence: US)
  Receive Date: 20130125
  Receipt Date: 20130306
  Transmission Date: 20140127
  Serious: No
  Sender: FDA-Public Use
  Company Number: US-009507513-1301USA005500

PATIENT
  Age: 20 Year
  Sex: Female
  Weight: 79.82 kg

DRUGS (3)
  1. IMPLANON [Suspect]
     Indication: CONTRACEPTION
     Dosage: 1 DF, UNK
     Dates: start: 20121227
  2. MELOXICAM [Concomitant]
  3. ZOLOFT [Concomitant]

REACTIONS (4)
  - Muscle spasms [Unknown]
  - Cholelithiasis [Unknown]
  - Metrorrhagia [Unknown]
  - Exposure during pregnancy [Unknown]
